FAERS Safety Report 10345160 (Version 2)
Quarter: 2014Q3

REPORT INFORMATION
  Report Type: Spontaneous
  Country: US (occurrence: US)
  Receive Date: 20140728
  Receipt Date: 20140909
  Transmission Date: 20150326
  Serious: Yes (Hospitalization, Disabling)
  Sender: FDA-Public Use
  Company Number: US-BAYER-2014-109988

PATIENT
  Age: 28 Year
  Sex: Female
  Weight: 52.15 kg

DRUGS (3)
  1. MIRENA [Suspect]
     Active Substance: LEVONORGESTREL
     Indication: CONTRACEPTION
     Dosage: 20 MCG/24HR, CONT
     Route: 015
     Dates: start: 20111019, end: 20120412
  2. PROTONIX [Concomitant]
     Active Substance: PANTOPRAZOLE SODIUM
     Indication: DUODENAL ULCER
     Dosage: UNK
     Dates: start: 2008
  3. LEXAPRO [Concomitant]
     Active Substance: ESCITALOPRAM OXALATE
     Indication: ANXIETY
     Dosage: UNK
     Dates: start: 2007

REACTIONS (6)
  - Anhedonia [None]
  - Injury [None]
  - Pain [None]
  - Discomfort [None]
  - General physical health deterioration [None]
  - Uterine perforation [None]

NARRATIVE: CASE EVENT DATE: 201203
